FAERS Safety Report 7580005-2 (Version None)
Quarter: 2011Q2

REPORT INFORMATION
  Report Type: 
  Country: None (occurrence: None)
  Receive Date: 20110629
  Receipt Date: 20110624
  Transmission Date: 20111010
  Serious: Yes (Death)
  Sender: FDA-Public Use
  Company Number: AU-BRISTOL-MYERS SQUIBB COMPANY-15853187

PATIENT
  Age: 40 Year

DRUGS (5)
  1. METHAMPHETAMINE HYDROCHLORIDE [Suspect]
  2. OXAZEPAM [Suspect]
  3. ACETAMINOPHEN [Suspect]
  4. IRBESARTAN [Suspect]
  5. METHADONE HCL [Suspect]

REACTIONS (5)
  - RESPIRATORY DEPRESSION [None]
  - PNEUMONIA [None]
  - TOXICITY TO VARIOUS AGENTS [None]
  - ACCIDENTAL OVERDOSE [None]
  - BRONCHITIS [None]
